FAERS Safety Report 7889560-6 (Version None)
Quarter: 2011Q4

REPORT INFORMATION
  Report Type: 
  Country: None (occurrence: None)
  Receive Date: 20111103
  Receipt Date: 20110211
  Transmission Date: 20120403
  Serious: No
  Sender: FDA-Public Use
  Company Number: US-BRISTOL-MYERS SQUIBB COMPANY-15546781

PATIENT
  Age: 40 Year
  Sex: Female

DRUGS (7)
  1. MAXALT [Concomitant]
  2. NAPRELAN [Concomitant]
  3. PROAIR HFA [Concomitant]
     Dosage: PROAIR INHALER
     Route: 055
  4. ACIPHEX [Concomitant]
  5. VITAMIN TAB [Concomitant]
  6. PREDNISONE [Concomitant]
     Dosage: PREDNISONE TAPER PACK
  7. KENALOG-40 [Suspect]
     Dates: start: 20101115

REACTIONS (4)
  - SKIN HYPOPIGMENTATION [None]
  - SKIN ATROPHY [None]
  - PAIN IN EXTREMITY [None]
  - PETECHIAE [None]
